FAERS Safety Report 9393639 (Version 2)
Quarter: 2013Q3

REPORT INFORMATION
  Report Type: Spontaneous
  Country: FR (occurrence: None)
  Receive Date: 20130705
  Receipt Date: 20130726
  Transmission Date: 20140515
  Serious: Yes (Other)
  Sender: FDA-Public Use
  Company Number: DSM-2013-00601

PATIENT
  Age: 78 Year
  Sex: Female

DRUGS (13)
  1. COOLMETEC [Suspect]
     Indication: PRODUCT USED FOR UNKNOWN INDICATION
     Dosage: 20/12.5 MG (1 IN 1 D), ORAL
     Dates: start: 2010, end: 201301
  2. NOVATREX [Suspect]
     Indication: PRODUCT USED FOR UNKNOWN INDICATION
     Dosage: 6 TABLETS PER WEEK, ORAL
     Route: 048
     Dates: start: 2005, end: 201301
  3. FORSTEO (TERIPARATIDE) (TERIPARATIDE) [Concomitant]
  4. SPECIAFOLDINE (FOLIC ACID) (5 MILLIGRAM) (FOLIC ACID) [Concomitant]
  5. UVEDOSE (COLECALCIFEROL) (COLECALCIFEROL) [Concomitant]
  6. CACIT-VITAMINE D (COLECALCIFEROL, CALCIUM CARBONATE) (COLECALCIFEROL, CALCIUM CARBONATE) [Concomitant]
  7. LANSOPRAZOLE BIOGARAN (LANSOPRAZOLE) (15 MILLIGRAM) (LANSOPRAZOLE) [Concomitant]
  8. RILMENIDINE ACTAVIS (RILMENIDINE) (1 MILLIGRAM) (RILMENIDINE) [Concomitant]
  9. DOLIPRANE (PARACETAMOL) (1000 MILLIGRAM) (PARACETAMOL) [Concomitant]
  10. MOGADON (NITRAZEPAM) (5 MILLIGRAM) (NITRAZEPAM) [Concomitant]
  11. ENBREL (ETANERCEPT) (50 MILLIGRAM, INJECTION) (ETANERCEPT) [Concomitant]
  12. ZALDIAR (PARACETAMOL, TRAMADOL) (PARACETAMOL, TRAMADOL) [Concomitant]
  13. IMMUGRIP (INFLUENZA VACCINE) (INFLUENZA VACCINE) [Concomitant]

REACTIONS (2)
  - Hepatitis cholestatic [None]
  - Gastrointestinal disorder [None]
